FAERS Safety Report 7835192-5 (Version None)
Quarter: 2011Q4

REPORT INFORMATION
  Report Type: 
  Country: None (occurrence: None)
  Receive Date: 20111020
  Receipt Date: 20110928
  Transmission Date: 20120403
  Serious: Yes (Hospitalization)
  Sender: FDA-Public Use
  Company Number: NL-006566

PATIENT
  Age: 49 Year
  Sex: Male

DRUGS (3)
  1. DESMOPRESSIN ACETATE [Suspect]
     Dosage: (NASAL)
     Route: 045
  2. ACETAMINOPHEN [Concomitant]
  3. THIAMINE HCL [Concomitant]

REACTIONS (5)
  - HYPOKALAEMIA [None]
  - DYSARTHRIA [None]
  - ALCOHOL WITHDRAWAL SYNDROME [None]
  - HYPERPHAGIA [None]
  - HYPONATRAEMIA [None]
